FAERS Safety Report 23960799 (Version 1)
Quarter: 2024Q2

REPORT INFORMATION
  Report Type: Report from Study
  Country: US (occurrence: US)
  Receive Date: 20240611
  Receipt Date: 20240611
  Transmission Date: 20240715
  Serious: No
  Sender: FDA-Public Use
  Company Number: US-GE HEALTHCARE-2024CSU005280

PATIENT

DRUGS (1)
  1. GADOLINIUM [Suspect]
     Active Substance: GADOLINIUM
     Indication: Diagnostic procedure
     Dosage: UNK UNK, TOTAL
     Route: 065

REACTIONS (1)
  - Blood test abnormal [Recovered/Resolved]
